FAERS Safety Report 7755404-6 (Version None)
Quarter: 2011Q3

REPORT INFORMATION
  Report Type: 
  Country: None (occurrence: None)
  Receive Date: 20110916
  Receipt Date: 20110906
  Transmission Date: 20111222
  Serious: Yes (Other)
  Sender: FDA-Public Use
  Company Number: US-JNJFOC-20110902584

PATIENT
  Sex: Female
  Weight: 86.64 kg

DRUGS (1)
  1. REMICADE [Suspect]
     Indication: RHEUMATOID ARTHRITIS
     Route: 042
     Dates: start: 20110801

REACTIONS (5)
  - BACK PAIN [None]
  - UPPER RESPIRATORY TRACT INFECTION [None]
  - INFLAMMATION [None]
  - BLOOD POTASSIUM DECREASED [None]
  - CHEST PAIN [None]
